FAERS Safety Report 17668482 (Version 1)
Quarter: 2020Q2

REPORT INFORMATION
  Report Type: Spontaneous
  Country: US (occurrence: US)
  Receive Date: 20200415
  Receipt Date: 20200415
  Transmission Date: 20200713
  Serious: Yes (Other)
  Sender: FDA-Public Use
  Company Number: US-AMGEN-USASP2020057346

PATIENT
  Sex: Female
  Weight: 63.4 kg

DRUGS (22)
  1. HYDROCORTISONE. [Concomitant]
     Active Substance: HYDROCORTISONE
     Dosage: UNK
     Dates: start: 20181106
  2. MAGNESIUM [Concomitant]
     Active Substance: MAGNESIUM
     Dosage: 200 MILLIGRAM, BID
     Route: 048
     Dates: start: 20170927
  3. VITAMIN B-6 [Concomitant]
     Active Substance: PYRIDOXINE
     Dosage: 25 MILLIGRAM
     Dates: start: 20191114
  4. TAXOTERE [Concomitant]
     Active Substance: DOCETAXEL
     Dosage: 30 MILLIGRAM, Q2MO
  5. ATIVAN [Concomitant]
     Active Substance: LORAZEPAM
     Dosage: 0.5 MILLIGRAM, QD
     Route: 048
     Dates: start: 20190815
  6. LOMOTIL [LOPERAMIDE HYDROCHLORIDE] [Concomitant]
     Indication: DIARRHOEA
     Dosage: UNK, 2.5 MG TO 0.025 MG 1-2 TABLETAND BID-QID FOR DIARRHOEA PRN
     Route: 048
     Dates: start: 20191125
  7. SYNTHROID [Concomitant]
     Active Substance: LEVOTHYROXINE SODIUM
     Dosage: 25 MICROGRAM, QD
     Route: 048
  8. KEYTRUDA [Concomitant]
     Active Substance: PEMBROLIZUMAB
     Dosage: UNK
     Dates: start: 20190110
  9. TAC [Concomitant]
     Active Substance: TRIAMCINOLONE ACETONIDE
     Dosage: UNK
  10. ALPHA LIPOIC ACID [Concomitant]
     Active Substance: .ALPHA.-LIPOIC ACID
     Dosage: 50 MILLIGRAM
     Dates: start: 20191114
  11. COENZYME Q10 [Concomitant]
     Active Substance: UBIDECARENONE
     Dosage: 30 MILLIGRAM, QD
     Route: 048
     Dates: start: 20170927
  12. TAXOL [Concomitant]
     Active Substance: PACLITAXEL
     Dosage: UNK
  13. XGEVA [Suspect]
     Active Substance: DENOSUMAB
     Indication: METASTASES TO BONE
     Dosage: UNK
     Route: 065
  14. NEULASTA [Suspect]
     Active Substance: PEGFILGRASTIM
     Indication: PRODUCT USED FOR UNKNOWN INDICATION
     Dosage: UNK MILLIGRAM
     Route: 058
  15. VITAMIN B12 [Concomitant]
     Active Substance: CYANOCOBALAMIN
     Dosage: 2000 MICROGRAM, QD
     Route: 048
     Dates: start: 20160127
  16. DEXAMETHASONE. [Concomitant]
     Active Substance: DEXAMETHASONE
     Dosage: 4 MILLIGRAM, 2 TABLETS ORALLY ON DAYS 2-4 AFTER TAKING AKYNZEO
     Route: 048
     Dates: start: 20200305
  17. TAMOXIFEN [Concomitant]
     Active Substance: TAMOXIFEN
     Dosage: UNK
  18. CALCIUM 500+D [Concomitant]
     Active Substance: CALCIUM\VITAMIN D
     Dosage: 500 MILLIGRAM, QD
     Route: 048
     Dates: start: 20180103
  19. FASLODEX [Concomitant]
     Active Substance: FULVESTRANT
     Dosage: UNK
     Dates: start: 20180219, end: 201810
  20. IBRANCE [Concomitant]
     Active Substance: PALBOCICLIB
     Dosage: UNK
     Dates: start: 20180219, end: 201810
  21. NEULASTA [Suspect]
     Active Substance: PEGFILGRASTIM
     Dosage: 6 MILLIGRAM, 0.6 ML
     Route: 058
     Dates: start: 20191119
  22. MULTIPLE VITAMINS [Concomitant]
     Active Substance: VITAMINS
     Dosage: UNK UNK, QD
     Route: 048
     Dates: start: 20160127

REACTIONS (14)
  - Fatigue [Unknown]
  - Tooth disorder [Unknown]
  - Constipation [Unknown]
  - Back pain [Unknown]
  - Skin atrophy [Unknown]
  - Anxiety [Unknown]
  - Alopecia [Unknown]
  - Hot flush [Unknown]
  - Depression [Unknown]
  - Nausea [Unknown]
  - Dizziness [Unknown]
  - Dyspepsia [Unknown]
  - Neck pain [Unknown]
  - Neuropathy peripheral [Unknown]
